FAERS Safety Report 13579249 (Version 2)
Quarter: 2017Q3

REPORT INFORMATION
  Report Type: Report from Study
  Country: CA (occurrence: CA)
  Receive Date: 20170525
  Receipt Date: 20170717
  Transmission Date: 20171127
  Serious: No
  Sender: FDA-Public Use
  Company Number: CA-HLSUS-2017-CA-000506

PATIENT
  Sex: Female
  Weight: 57 kg

DRUGS (10)
  1. CLOZARIL [Suspect]
     Active Substance: CLOZAPINE
     Indication: SCHIZOPHRENIA
     Dosage: 25 MG DAILY BED TIME
     Route: 048
  2. JANUVIA [Concomitant]
     Active Substance: SITAGLIPTIN PHOSPHATE
     Dosage: 100 MG ONCE DAILY
     Route: 048
     Dates: start: 2011
  3. ALPRAZOLAM. [Concomitant]
     Active Substance: ALPRAZOLAM
     Indication: ANXIETY
     Dosage: 0.5 MG ONCE DAILY AS NEEDED
     Route: 048
  4. PMS-TRIHEXYPHENIDYL [Concomitant]
     Dosage: 2 MG DAILY MORNING AND 1 MG DAILY BED TIME
     Route: 048
  5. CRESTOR [Concomitant]
     Active Substance: ROSUVASTATIN CALCIUM
     Dosage: 10 MG ONCE DAILY
     Route: 048
     Dates: start: 2011
  6. ACARBOSE. [Concomitant]
     Active Substance: ACARBOSE
     Dosage: 50 MG THREE TIMES A DAY
     Route: 048
     Dates: start: 1997
  7. ACTONEL [Concomitant]
     Active Substance: RISEDRONATE SODIUM
     Dosage: 150 MG ONCE MONTHLY
     Route: 048
     Dates: start: 2011
  8. CLOPIXOL [Concomitant]
     Active Substance: ZUCLOPENTHIXOL ACETATE
     Dosage: 10 MG DAILY BED TIME
     Route: 048
  9. SYNTHROID [Concomitant]
     Active Substance: LEVOTHYROXINE SODIUM
     Dosage: 75 MCG ONCE DAILY
     Route: 048
  10. METFORMIN [Concomitant]
     Active Substance: METFORMIN HYDROCHLORIDE
     Dosage: 1 GM TWICE A DAY
     Route: 048
     Dates: start: 1997

REACTIONS (1)
  - Anxiety [Unknown]
